FAERS Safety Report 19143200 (Version 1)
Quarter: 2021Q2

REPORT INFORMATION
  Report Type: Spontaneous
  Country: US (occurrence: US)
  Receive Date: 20210415
  Receipt Date: 20210415
  Transmission Date: 20210717
  Serious: No
  Sender: FDA-Public Use
  Company Number: US-TERSERA THERAPEUTICS LLC-2020TRS003542

PATIENT

DRUGS (4)
  1. RADIUM [Suspect]
     Active Substance: RADIUM
     Indication: PRODUCT USED FOR UNKNOWN INDICATION
     Dosage: UNK
     Route: 042
  2. XERMELO [Suspect]
     Active Substance: TELOTRISTAT ETHYL
     Indication: CARCINOID TUMOUR
     Dosage: 250 MG, TID (TAKE 1 TABLET BY MOUTH 3 TIMES)
     Route: 048
     Dates: start: 20191119
  3. SANDOSTATIN [Concomitant]
     Active Substance: OCTREOTIDE ACETATE
     Indication: PRODUCT USED FOR UNKNOWN INDICATION
     Dosage: UNK, MONTHLY
     Route: 065
  4. XERMELO [Suspect]
     Active Substance: TELOTRISTAT ETHYL
     Dosage: 250 MG, BID (SOMETIMES DUE TO CONSTIPATION)
     Route: 048

REACTIONS (3)
  - Constipation [Unknown]
  - Inappropriate schedule of product administration [Unknown]
  - Nausea [Unknown]
